FAERS Safety Report 6976293-3 (Version None)
Quarter: 2010Q3

REPORT INFORMATION
  Report Type: 
  Country: None (occurrence: None)
  Receive Date: 20100910
  Receipt Date: 20100820
  Transmission Date: 20110219
  Serious: Yes (Hospitalization)
  Sender: FDA-Public Use
  Company Number: PL-ASTRAZENECA-2010SE42195

PATIENT
  Age: 41 Day
  Sex: Male
  Weight: 3.5 kg

DRUGS (10)
  1. MEROPENEM [Suspect]
     Indication: PNEUMONIA
     Route: 042
     Dates: start: 20100217, end: 20100304
  2. MEROPENEM [Suspect]
     Indication: SEPSIS
     Route: 042
     Dates: start: 20100217, end: 20100304
  3. TARGOCID [Suspect]
     Indication: PNEUMONIA
     Route: 065
  4. TARGOCID [Suspect]
     Indication: SEPSIS
     Route: 065
  5. PERFALGAN [Concomitant]
     Indication: PNEUMONIA
     Dates: start: 20100213, end: 20100306
  6. PERFALGAN [Concomitant]
     Indication: SEPSIS
     Dates: start: 20100213, end: 20100306
  7. DIFLUCAN [Concomitant]
     Indication: PNEUMONIA
     Route: 042
     Dates: end: 20100306
  8. DIFLUCAN [Concomitant]
     Indication: SEPSIS
     Route: 042
     Dates: end: 20100306
  9. DORMICUM [Concomitant]
     Indication: PNEUMONIA
     Dosage: 0.1 MG/KG/H DAILY
     Route: 042
     Dates: start: 20100216, end: 20100302
  10. DORMICUM [Concomitant]
     Indication: SEPSIS
     Dosage: 0.1 MG/KG/H DAILY
     Route: 042
     Dates: start: 20100216, end: 20100302

REACTIONS (1)
  - CHOLESTASIS [None]
